FAERS Safety Report 7166896-8 (Version None)
Quarter: 2010Q4

REPORT INFORMATION
  Report Type: 
  Country: None (occurrence: None)
  Receive Date: 20101213
  Receipt Date: 20101213
  Transmission Date: 20110411
  Serious: Yes (Other)
  Sender: FDA-Public Use
  Company Number: None

PATIENT
  Age: 48 Year
  Sex: Female
  Weight: 114.76 kg

DRUGS (1)
  1. AVELOX [Suspect]
     Indication: SINUSITIS BACTERIAL
     Dosage: 1 TABLET DAILY PO
     Route: 048
     Dates: start: 20101209, end: 20101209

REACTIONS (2)
  - ANAPHYLACTIC REACTION [None]
  - URTICARIA [None]
